FAERS Safety Report 8255675 (Version 2)
Quarter: 2013Q1

REPORT INFORMATION
  Report Type: Spontaneous
  Country: US (occurrence: US)
  Receive Date: 20111118
  Receipt Date: 20130204
  Transmission Date: 20140127
  Serious: Yes (Other)
  Sender: FDA-Public Use
  Company Number: US-RB-027372-11

PATIENT
  Age: 30 None
  Sex: Female

DRUGS (7)
  1. SUBOXONE [Suspect]
     Indication: PRODUCT USED FOR UNKNOWN INDICATION
     Dosage: DOSING INFORMATION UNKNOWN
     Route: 065
  2. MOTRIN [Concomitant]
     Indication: PRODUCT USED FOR UNKNOWN INDICATION
     Dosage: DURATION OF DRUG IS ONLY NOTED AS YEARS
     Route: 065
  3. PHENERGAN [Concomitant]
     Indication: NAUSEA
     Route: 065
     Dates: start: 201101
  4. PHENERGAN [Concomitant]
     Indication: VOMITING
     Route: 065
     Dates: start: 201101
  5. RITALIN [Concomitant]
     Indication: ATTENTION DEFICIT/HYPERACTIVITY DISORDER
     Route: 065
  6. KLONOPIN [Concomitant]
     Indication: ANXIETY
     Route: 065
  7. SEROQUEL [Concomitant]
     Indication: INSOMNIA
     Dosage: 100 MG AT BEDTIME
     Route: 065

REACTIONS (5)
  - Exposure during pregnancy [Recovered/Resolved]
  - Nausea [Not Recovered/Not Resolved]
  - Vomiting [Not Recovered/Not Resolved]
  - Placenta praevia [Recovered/Resolved]
  - Premature delivery [Recovered/Resolved]
